FAERS Safety Report 9997660 (Version 1)
Quarter: 2014Q1

REPORT INFORMATION
  Report Type: Spontaneous
  Country: GB (occurrence: GB)
  Receive Date: 20140311
  Receipt Date: 20140311
  Transmission Date: 20141002
  Serious: Yes (Life-Threatening)
  Sender: FDA-Public Use
  Company Number: GB-TEVA-467483ISR

PATIENT
  Age: 47 Year
  Sex: Male
  Weight: 73 kg

DRUGS (5)
  1. TRAMADOL [Suspect]
     Route: 048
     Dates: start: 20140206, end: 20140206
  2. CODEINE LINCTUS [Concomitant]
     Dosage: 15MG/5ML
  3. FERROUS FUMARATE [Concomitant]
     Dosage: 140MG IN 5ML LINCTUS
  4. OMEPRAZOLE [Concomitant]
  5. PARACETAMOL [Concomitant]

REACTIONS (6)
  - Dizziness [Recovered/Resolved with Sequelae]
  - Vomiting [Recovered/Resolved with Sequelae]
  - Hyperhidrosis [Recovered/Resolved with Sequelae]
  - Vision blurred [Not Recovered/Not Resolved]
  - Hypotension [Recovered/Resolved with Sequelae]
  - Blindness unilateral [Not Recovered/Not Resolved]
